FAERS Safety Report 16429924 (Version 2)
Quarter: 2019Q3

REPORT INFORMATION
  Report Type: Spontaneous
  Country: DE (occurrence: DE)
  Receive Date: 20190614
  Receipt Date: 20190719
  Transmission Date: 20191004
  Serious: Yes (Hospitalization, Other)
  Sender: FDA-Public Use
  Company Number: DE-TEVA-2019-DE-1060643

PATIENT
  Age: 59 Year
  Sex: Male
  Weight: 50 kg

DRUGS (4)
  1. OXALIPLATIN 85 MG/M2 [Concomitant]
     Dosage: 125 MG ABSOLUTELY OVER 2 H
  2. CALCIUMFOLINAT 200 MG/M2 [Concomitant]
     Dosage: 300 MG ABSOLUTELY OVER 1 H
  3. FLUOROURACIL-GRY 50 MG/ML INJEKTIONSLOESUNG [Suspect]
     Active Substance: FLUOROURACIL
     Indication: METASTATIC GASTRIC CANCER
     Dosage: OVER 12 H INSTEAD OF 24 H,FIRST INJECTION, 3900 MG ABSOLUTELY OVER 24 H(IN 1090 ML CARRIER SOLUTION)
     Route: 042
     Dates: start: 20190604, end: 20190605
  4. DOCETAXEL 50MG/M2 [Concomitant]
     Dosage: 75 MG ABSOLUTELY OVER 1 H

REACTIONS (4)
  - Status epilepticus [Recovered/Resolved]
  - Incorrect dose administered [Unknown]
  - Coma [Recovered/Resolved]
  - Amnesia [Recovered/Resolved]

NARRATIVE: CASE EVENT DATE: 20190605
